FAERS Safety Report 19466306 (Version 2)
Quarter: 2021Q3

REPORT INFORMATION
  Report Type: Report from Study
  Country: KR (occurrence: KR)
  Receive Date: 20210627
  Receipt Date: 20210705
  Transmission Date: 20211014
  Serious: Yes (Hospitalization)
  Sender: FDA-Public Use
  Company Number: KR-CELLTRION INC.-2021KR008446

PATIENT

DRUGS (19)
  1. SOLONDO [Concomitant]
     Active Substance: PREDNISOLONE
     Indication: PROPHYLAXIS
  2. PHOSTEN [Concomitant]
     Indication: ELECTROLYTE IMBALANCE
     Dosage: 20 ML, QD
     Route: 042
     Dates: start: 20210621, end: 20210621
  3. MACPERAN [Concomitant]
     Active Substance: METOCLOPRAMIDE HYDROCHLORIDE
     Indication: NAUSEA
     Dosage: 10 MG, PRN
     Route: 048
     Dates: start: 2021
  4. ULTRACET ER SEMI [Concomitant]
     Indication: HEADACHE
     Dosage: 325 MG, BID
     Route: 048
     Dates: start: 20210210
  5. GUJU SPIRODACTONE [Concomitant]
     Indication: LEFT VENTRICULAR FAILURE
     Dosage: 12.5 MG, DAILY
     Route: 048
     Dates: start: 20210219, end: 20210220
  6. HERZUMA [Suspect]
     Active Substance: TRASTUZUMAB-PKRB
     Indication: HER2 POSITIVE BREAST CANCER
     Dosage: UNK
     Dates: start: 20210610
  7. TOREM [Concomitant]
     Active Substance: TORSEMIDE
     Indication: LEFT VENTRICULAR FAILURE
     Dosage: 5 MG, DAILY
     Route: 048
     Dates: start: 20210219
  8. SOLONDO [Concomitant]
     Active Substance: PREDNISOLONE
     Indication: INTRACRANIAL PRESSURE INCREASED
     Dosage: 10 MG, BID
     Route: 048
     Dates: start: 20190919
  9. TIROPA [Concomitant]
     Active Substance: TIROPRAMIDE
     Indication: ABDOMINAL PAIN UPPER
     Dosage: 5 MG, QD
     Route: 042
     Dates: start: 20210617
  10. HERZUMA [Suspect]
     Active Substance: TRASTUZUMAB-PKRB
     Dosage: UNK
     Route: 042
     Dates: start: 20210617
  11. FLORINEF ACETATE [Concomitant]
     Active Substance: FLUDROCORTISONE ACETATE
     Indication: METASTASES TO ADRENALS
     Dosage: 100 MICROGRAM, QD
     Route: 048
     Dates: start: 20200917
  12. NYSTATIN. [Concomitant]
     Active Substance: NYSTATIN
     Indication: STOMATITIS
     Dosage: 1 ML, TID
     Route: 048
     Dates: start: 20210616
  13. LOPERAMIDE [Concomitant]
     Active Substance: LOPERAMIDE
     Indication: DIARRHOEA
     Dosage: 10 MG, PRN
     Route: 048
     Dates: start: 2021
  14. BONARING?A [Concomitant]
     Indication: METASTASES TO CENTRAL NERVOUS SYSTEM
     Dosage: 50 MG, BID
     Route: 048
     Dates: start: 20210401
  15. GASMOTIN [Concomitant]
     Active Substance: MOSAPRIDE CITRATE
     Indication: DYSPEPSIA
  16. MAGNESIN 10% [Concomitant]
     Indication: ELECTROLYTE IMBALANCE
     Dosage: 20 ML, QD
     Route: 042
     Dates: start: 20210621, end: 20210621
  17. BARACLUDE [Concomitant]
     Active Substance: ENTECAVIR
     Indication: HEPATITIS B
     Dosage: 0.5 MG, QD
     Route: 048
     Dates: start: 20190919
  18. CRESTOR [Concomitant]
     Active Substance: ROSUVASTATIN CALCIUM
     Indication: LEFT VENTRICULAR FAILURE
     Dosage: 5 MG, DAILY
     Route: 048
     Dates: start: 20210219
  19. GASMOTIN [Concomitant]
     Active Substance: MOSAPRIDE CITRATE
     Indication: PROPHYLAXIS
     Dosage: 5 MG, BID
     Route: 048
     Dates: start: 20210401

REACTIONS (1)
  - Acute kidney injury [Recovered/Resolved]

NARRATIVE: CASE EVENT DATE: 20210617
